FAERS Safety Report 12415521 (Version 2)
Quarter: 2016Q3

REPORT INFORMATION
  Report Type: Spontaneous
  Country: US (occurrence: US)
  Receive Date: 20160530
  Receipt Date: 20160805
  Transmission Date: 20161109
  Serious: No
  Sender: FDA-Public Use
  Company Number: US-PFIZER INC-2016249995

PATIENT
  Age: 69 Year
  Sex: Female
  Weight: 70.31 kg

DRUGS (7)
  1. LYRICA [Suspect]
     Active Substance: PREGABALIN
     Indication: BURNING SENSATION
     Dosage: 25MG, CAPSULES, BY MOUTH, THREE TIMES A DAY
     Route: 048
     Dates: start: 201512
  2. ATORVASTATIN [Concomitant]
     Active Substance: ATORVASTATIN
     Indication: BLOOD CHOLESTEROL ABNORMAL
     Dosage: 1 DF, DAILY (ONE A DAY)
     Dates: start: 201511
  3. NEURONTIN [Suspect]
     Active Substance: GABAPENTIN
     Indication: BURNING SENSATION
     Dosage: 6 DF, DAILY (TWO OF THE NEURONTIN IN THE MORNING, TWO IN THE MIDDLE OF THE DAY,AND TWO AT NIGHT)
     Route: 048
     Dates: start: 201512, end: 201512
  4. NEURONTIN [Suspect]
     Active Substance: GABAPENTIN
     Indication: CEREBROVASCULAR ACCIDENT
  5. LYRICA [Suspect]
     Active Substance: PREGABALIN
     Dosage: TWO 50MG TWICE A DAY AND ONE 25MG ONCE A DAY
     Route: 048
  6. LYRICA [Suspect]
     Active Substance: PREGABALIN
     Dosage: INCREASED HER DOSE TO FIVE TIMES A DAY
  7. LYRICA [Suspect]
     Active Substance: PREGABALIN
     Dosage: 100 MG, 1X/DAY

REACTIONS (9)
  - Feeling hot [Recovered/Resolved]
  - Dyspnoea [Recovered/Resolved]
  - Palpitations [Recovered/Resolved]
  - Product use issue [Unknown]
  - Hyperhidrosis [Recovered/Resolved]
  - Peripheral swelling [Unknown]
  - Somnolence [Unknown]
  - Ear disorder [Recovered/Resolved]
  - Drug ineffective for unapproved indication [Unknown]

NARRATIVE: CASE EVENT DATE: 201512
